FAERS Safety Report 9367224 (Version 1)
Quarter: 2013Q2

REPORT INFORMATION
  Report Type: Spontaneous
  Country: US (occurrence: US)
  Receive Date: 20130625
  Receipt Date: 20130625
  Transmission Date: 20140414
  Serious: No
  Sender: FDA-Public Use
  Company Number: US-ASTELLAS-2012US005934

PATIENT
  Sex: 0

DRUGS (10)
  1. VESICARE [Suspect]
     Indication: HYPERTONIC BLADDER
     Dosage: 10 MG, UID/QD
     Route: 048
     Dates: start: 20120625, end: 201207
  2. LOVASTATIN [Concomitant]
     Indication: BLOOD CHOLESTEROL
     Dosage: UNK
     Route: 065
  3. ZETIA [Concomitant]
     Indication: BLOOD CHOLESTEROL
     Dosage: UNK
     Route: 065
  4. LIPITOR [Concomitant]
     Indication: BLOOD CHOLESTEROL
     Dosage: 80 MG, UID/QD
     Route: 048
  5. METFORMIN [Concomitant]
     Indication: DIABETES MELLITUS
     Dosage: 80 MG, UID/QD
     Route: 048
  6. PAXIL [Concomitant]
     Indication: DEPRESSION
     Dosage: 20 MG, UID/QD
     Route: 048
  7. OSTEO BI-FLEX [Concomitant]
     Indication: ARTHRITIS
     Dosage: UNK
     Route: 065
  8. COENZYME Q10 [Concomitant]
     Indication: CARDIOVASCULAR EVENT PROPHYLAXIS
     Dosage: UNK
     Route: 065
  9. GLUCOSAMINE [Concomitant]
     Indication: ARTHRITIS
     Dosage: UNK
     Route: 065
  10. LORAZEPAM [Concomitant]
     Indication: ANXIETY
     Dosage: UNK
     Route: 065

REACTIONS (4)
  - Drug ineffective [Unknown]
  - Hyperhidrosis [Unknown]
  - Genital discomfort [Unknown]
  - Cough [Unknown]
